FAERS Safety Report 17426661 (Version 2)
Quarter: 2020Q1

REPORT INFORMATION
  Report Type: Report from Study
  Country: US (occurrence: US)
  Receive Date: 20200218
  Receipt Date: 20200228
  Transmission Date: 20200409
  Serious: Yes (Other)
  Sender: FDA-Public Use
  Company Number: US-ROCHE-1887779

PATIENT
  Age: 86 Year
  Sex: Female
  Weight: 71.73 kg

DRUGS (10)
  1. LUCENTIS [Suspect]
     Active Substance: RANIBIZUMAB
     Indication: NEOVASCULAR AGE-RELATED MACULAR DEGENERATION
     Route: 031
  2. LOSARTAN. [Concomitant]
     Active Substance: LOSARTAN
     Route: 048
  3. FISH OIL [Concomitant]
     Active Substance: FISH OIL
  4. LUCENTIS [Suspect]
     Active Substance: RANIBIZUMAB
     Indication: NEOVASCULAR AGE-RELATED MACULAR DEGENERATION
  5. ACEBUTOLOL [Concomitant]
     Active Substance: ACEBUTOLOL
  6. NORVASC [Concomitant]
     Active Substance: AMLODIPINE BESYLATE
     Indication: HYPERTENSION
     Route: 048
  7. LUCENTIS [Suspect]
     Active Substance: RANIBIZUMAB
     Indication: CHOROIDAL NEOVASCULARISATION
  8. AREDS [Concomitant]
     Active Substance: MINERALS\VITAMINS
  9. METFORMIN [Concomitant]
     Active Substance: METFORMIN HYDROCHLORIDE
     Indication: TYPE 2 DIABETES MELLITUS
     Route: 065
  10. COZAAR [Concomitant]
     Active Substance: LOSARTAN POTASSIUM

REACTIONS (11)
  - Retinal detachment [Recovered/Resolved]
  - Amnesia [Not Recovered/Not Resolved]
  - Blindness unilateral [Recovered/Resolved with Sequelae]
  - Intraocular pressure decreased [Recovered/Resolved]
  - Stress [Unknown]
  - Glaucoma [Recovered/Resolved]
  - Eye infection [Unknown]
  - Eye discharge [Recovered/Resolved]
  - Night blindness [Not Recovered/Not Resolved]
  - Confusional state [Not Recovered/Not Resolved]
  - Intraocular pressure increased [Recovered/Resolved]

NARRATIVE: CASE EVENT DATE: 201908
